FAERS Safety Report 16420656 (Version 6)
Quarter: 2019Q3

REPORT INFORMATION
  Report Type: Report from Study
  Country: US (occurrence: US)
  Receive Date: 20190612
  Receipt Date: 20190724
  Transmission Date: 20191004
  Serious: Yes (Death, Hospitalization, Disabling, Other)
  Sender: FDA-Public Use
  Company Number: PHHY2018US202081

PATIENT
  Age: 61 Year
  Sex: Female
  Weight: 83 kg

DRUGS (35)
  1. AFINITOR [Suspect]
     Active Substance: EVEROLIMUS
     Indication: BREAST CANCER
     Dosage: 7.5 MG, UNK
     Route: 065
     Dates: start: 20180416
  2. ZOMETA [Suspect]
     Active Substance: ZOLEDRONIC ACID
     Indication: BREAST CANCER
     Dosage: UNK
     Route: 065
     Dates: start: 20161122, end: 201803
  3. ZOMETA [Suspect]
     Active Substance: ZOLEDRONIC ACID
     Dosage: UNK
     Route: 065
     Dates: start: 201810
  4. EXEMESTANE. [Suspect]
     Active Substance: EXEMESTANE
     Indication: BREAST CANCER METASTATIC
     Dosage: 25 MG, QD
     Route: 048
     Dates: start: 20180416
  5. POTASSIUM CHLORIDE. [Concomitant]
     Active Substance: POTASSIUM CHLORIDE
     Indication: PRODUCT USED FOR UNKNOWN INDICATION
     Dosage: 40 MEQ, ONCE/SINGLE
     Route: 048
  6. ALPRAZOLAM. [Suspect]
     Active Substance: ALPRAZOLAM
     Indication: PRODUCT USED FOR UNKNOWN INDICATION
     Dosage: 0.5 MG, QD PRN
     Route: 048
  7. IBRANCE [Suspect]
     Active Substance: PALBOCICLIB
     Indication: BREAST CANCER METASTATIC
     Dosage: 100 MG, QD
     Route: 048
     Dates: start: 20160901
  8. ULTRAM [Concomitant]
     Active Substance: TRAMADOL HYDROCHLORIDE
     Indication: PRODUCT USED FOR UNKNOWN INDICATION
     Dosage: 50 MG, PRN EVERY 6 HOURS
     Route: 048
  9. CIPRO [Concomitant]
     Active Substance: CIPROFLOXACIN HYDROCHLORIDE
     Indication: PRODUCT USED FOR UNKNOWN INDICATION
     Dosage: 500 MG, BID
     Route: 048
  10. PAROXETINE. [Concomitant]
     Active Substance: PAROXETINE
     Indication: ANXIETY
     Dosage: 20 MG, QD
     Route: 048
     Dates: start: 20180713
  11. LIDOCAINE HCL [Concomitant]
     Active Substance: LIDOCAINE HYDROCHLORIDE
     Indication: PRODUCT USED FOR UNKNOWN INDICATION
     Dosage: 0.5 ML, UNK
     Route: 023
  12. LETROZOLE. [Suspect]
     Active Substance: LETROZOLE
     Indication: BREAST CANCER METASTATIC
     Dosage: 2.5 MG, QD
     Route: 048
     Dates: start: 20160901
  13. MEGLUMINE GADOTERATE [Concomitant]
     Active Substance: GADOTERATE MEGLUMINE
     Indication: PRODUCT USED FOR UNKNOWN INDICATION
     Dosage: UNK UNK, PRN
     Route: 042
  14. FAMOTIDINE. [Suspect]
     Active Substance: FAMOTIDINE
     Indication: PRODUCT USED FOR UNKNOWN INDICATION
     Dosage: 20 MG, Q12H
     Route: 042
  15. METOPROLOL TARTRATE. [Suspect]
     Active Substance: METOPROLOL TARTRATE
     Indication: TACHYCARDIA
     Dosage: 50 MG, BID
     Route: 048
  16. XELODA [Suspect]
     Active Substance: CAPECITABINE
     Dosage: 500 MG, BID (TAKE FOR 2 WEEKS  AND 7 DAY OFF)
     Route: 048
     Dates: start: 20190117
  17. ZOFRAN [Concomitant]
     Active Substance: ONDANSETRON HYDROCHLORIDE
     Indication: PROPHYLAXIS OF NAUSEA AND VOMITING
     Dosage: 8 MG, PRN
     Route: 048
  18. LEXAPRO [Concomitant]
     Active Substance: ESCITALOPRAM OXALATE
     Indication: PRODUCT USED FOR UNKNOWN INDICATION
     Dosage: 10 MG, QD
     Route: 048
  19. DOCUSATE SODIUM. [Concomitant]
     Active Substance: DOCUSATE SODIUM
     Indication: PRODUCT USED FOR UNKNOWN INDICATION
     Dosage: 100 MG, BID
     Route: 048
  20. MORPHINE SULPHATE [Concomitant]
     Active Substance: MORPHINE SULFATE
     Indication: PRODUCT USED FOR UNKNOWN INDICATION
     Dosage: 5 MG, Q4H PRN
     Route: 048
  21. FERROUS SULFATE. [Concomitant]
     Active Substance: FERROUS SULFATE
     Indication: PRODUCT USED FOR UNKNOWN INDICATION
     Dosage: 325 MG, BID
     Route: 048
  22. FULVESTRANT. [Suspect]
     Active Substance: FULVESTRANT
     Dosage: 500 MG, QD
     Route: 030
     Dates: start: 20190402
  23. NAPROXEN SODIUM. [Suspect]
     Active Substance: NAPROXEN SODIUM
     Indication: PAIN
     Dosage: 500 MG, PRN
     Route: 048
  24. METOPROLOL TARTRATE. [Suspect]
     Active Substance: METOPROLOL TARTRATE
     Dosage: 75 MG, BID
     Route: 048
  25. ATENOLOL. [Suspect]
     Active Substance: ATENOLOL
     Indication: PRODUCT USED FOR UNKNOWN INDICATION
     Dosage: 50 MG, QD
     Route: 048
  26. XANAX [Concomitant]
     Active Substance: ALPRAZOLAM
     Indication: ANXIETY
     Dosage: 0.5 MG, TID PRN
     Route: 048
  27. LEVAQUIN [Concomitant]
     Active Substance: LEVOFLOXACIN
     Indication: PRODUCT USED FOR UNKNOWN INDICATION
     Dosage: 500 MG, QD
     Route: 065
  28. SODIUM CHLORIDE. [Concomitant]
     Active Substance: SODIUM CHLORIDE
     Indication: PRODUCT USED FOR UNKNOWN INDICATION
     Dosage: 500 ML, UNK
     Route: 042
  29. ALBUTEROL SULFATE AND IPRATROPIUM BROMIDE [Concomitant]
     Active Substance: ALBUTEROL SULFATE\IPRATROPIUM BROMIDE
     Indication: PRODUCT USED FOR UNKNOWN INDICATION
     Dosage: UNK UNK, PRN
     Route: 065
  30. MULTIVITAMINS [Concomitant]
     Active Substance: VITAMINS
     Indication: PRODUCT USED FOR UNKNOWN INDICATION
     Dosage: 1 DF, QD
     Route: 048
  31. FULVESTRANT. [Suspect]
     Active Substance: FULVESTRANT
     Indication: PRODUCT USED FOR UNKNOWN INDICATION
     Dosage: 500 MG, QD
     Route: 030
     Dates: start: 20190319
  32. XELODA [Suspect]
     Active Substance: CAPECITABINE
     Indication: BREAST CANCER METASTATIC
     Dosage: 500 MG, BID (TAKE FOR 2 WEEKS  AND 7 DAY OFF)
     Route: 048
     Dates: start: 201812
  33. DENOSUMAB [Suspect]
     Active Substance: DENOSUMAB
     Indication: PRODUCT USED FOR UNKNOWN INDICATION
     Dosage: 120 MG, UNK
     Route: 065
     Dates: start: 20190315
  34. SODIUM CHLORIDE. [Concomitant]
     Active Substance: SODIUM CHLORIDE
     Dosage: 1000 ML, EVERY 6 HOUR 40 MINS
     Route: 042
  35. FOLIC ACID. [Concomitant]
     Active Substance: FOLIC ACID
     Indication: PRODUCT USED FOR UNKNOWN INDICATION
     Dosage: 1 MG, QD
     Route: 048

REACTIONS (103)
  - Metastases to liver [Unknown]
  - Fatigue [Unknown]
  - Blood cholesterol increased [Unknown]
  - Feeling cold [Unknown]
  - Palpitations [Unknown]
  - Bone lesion [Unknown]
  - Haematocrit decreased [Unknown]
  - Mean cell haemoglobin decreased [Unknown]
  - White blood cell count increased [Unknown]
  - Mitral valve calcification [Unknown]
  - Aortic valve sclerosis [Unknown]
  - Metastases to central nervous system [Fatal]
  - Malignant neoplasm progression [Fatal]
  - Neuropathy peripheral [Not Recovered/Not Resolved]
  - Hilar lymphadenopathy [Unknown]
  - Lymphadenopathy mediastinal [Unknown]
  - Monocyte count decreased [Unknown]
  - Blood urea decreased [Unknown]
  - Red blood cell count decreased [Unknown]
  - Lymphocyte count decreased [Unknown]
  - Red cell distribution width increased [Unknown]
  - Blood calcium increased [Unknown]
  - Mean cell volume increased [Unknown]
  - Monocyte count increased [Unknown]
  - Blood bilirubin increased [Unknown]
  - Neutrophil count increased [Unknown]
  - Impaired work ability [Unknown]
  - Oesophagitis [Unknown]
  - Constipation [Unknown]
  - Pain [Unknown]
  - Insomnia [Unknown]
  - Vitamin D decreased [Unknown]
  - Low density lipoprotein increased [Unknown]
  - Pneumonia [Unknown]
  - Metastases to meninges [Unknown]
  - Tricuspid valve incompetence [Unknown]
  - Metastases to lung [Unknown]
  - Oedema peripheral [Unknown]
  - Pollakiuria [Unknown]
  - Aphasia [Unknown]
  - Spinal pain [Unknown]
  - Alopecia [Unknown]
  - Burning sensation [Unknown]
  - Diplopia [Unknown]
  - Hepatomegaly [Unknown]
  - Blood albumin decreased [Unknown]
  - Protein total decreased [Unknown]
  - Lymphocyte count increased [Unknown]
  - Blood triglycerides increased [Unknown]
  - Non-high-density lipoprotein cholesterol increased [Unknown]
  - Carbohydrate antigen 27.29 increased [Unknown]
  - Prothrombin time prolonged [Unknown]
  - Protein urine present [Unknown]
  - Lung infiltration [Unknown]
  - Skin exfoliation [Unknown]
  - Breast cancer [Fatal]
  - General physical health deterioration [Unknown]
  - Metastases to lymph nodes [Unknown]
  - Decreased appetite [Unknown]
  - Dry skin [Unknown]
  - Haemorrhoidal haemorrhage [Unknown]
  - Crying [Unknown]
  - Stomatitis [Unknown]
  - Dizziness [Unknown]
  - Pleural effusion [Unknown]
  - Blood sodium decreased [Unknown]
  - Blood calcium decreased [Unknown]
  - Mean cell haemoglobin increased [Unknown]
  - Glycosylated haemoglobin increased [Unknown]
  - Blood alkaline phosphatase increased [Unknown]
  - Aspartate aminotransferase increased [Unknown]
  - Mean cell haemoglobin concentration increased [Unknown]
  - Mitral valve thickening [Unknown]
  - Asthenia [Unknown]
  - Radiation associated pain [Recovered/Resolved]
  - Pyrexia [Unknown]
  - Transaminases increased [Unknown]
  - Blood chloride decreased [Unknown]
  - Carbohydrate antigen 15-3 increased [Unknown]
  - Blood cholesterol increased [Unknown]
  - Blood glucose increased [Unknown]
  - Aortic valve thickening [Unknown]
  - Confusional state [Unknown]
  - Metastases to bone [Unknown]
  - Taste disorder [Unknown]
  - Depression [Unknown]
  - Anhedonia [Unknown]
  - Hot flush [Recovered/Resolved]
  - Dyspepsia [Unknown]
  - Cholelithiasis [Unknown]
  - Blood creatinine decreased [Unknown]
  - Urobilinogen urine increased [Unknown]
  - Hypercalcaemia [Unknown]
  - Carcinoembryonic antigen increased [Unknown]
  - Hepatic enzyme increased [Unknown]
  - Weight decreased [Unknown]
  - Lethargy [Unknown]
  - Drug intolerance [Unknown]
  - Cough [Recovered/Resolved]
  - Incontinence [Unknown]
  - Alanine aminotransferase increased [Unknown]
  - Haemoglobin decreased [Unknown]
  - Platelet count increased [Unknown]

NARRATIVE: CASE EVENT DATE: 20160827
